FAERS Safety Report 22205148 (Version 3)
Quarter: 2023Q2

REPORT INFORMATION
  Report Type: Report from Study
  Country: US (occurrence: US)
  Receive Date: 20230413
  Receipt Date: 20230608
  Transmission Date: 20230722
  Serious: Yes (Death, Hospitalization)
  Sender: FDA-Public Use
  Company Number: US-002147023-NVSC2023US082125

PATIENT
  Sex: Female
  Weight: 53.968 kg

DRUGS (4)
  1. TREPROSTINIL [Suspect]
     Active Substance: TREPROSTINIL
     Indication: Pulmonary arterial hypertension
     Dosage: UNK, CONT (10 NG/KG/ MIN)
     Route: 042
     Dates: start: 20230215
  2. TREPROSTINIL [Suspect]
     Active Substance: TREPROSTINIL
     Dosage: UNK, CONT (19 NG/KG/ MIN)
     Route: 042
  3. OPSUMIT [Concomitant]
     Active Substance: MACITENTAN
     Indication: Product used for unknown indication
     Dosage: UNK
     Route: 065
  4. SILDENAFIL CITRATE [Concomitant]
     Active Substance: SILDENAFIL CITRATE
     Indication: Product used for unknown indication
     Dosage: UNK
     Route: 065

REACTIONS (3)
  - Death [Fatal]
  - Dyspnoea [Unknown]
  - Oxygen saturation decreased [Unknown]
